FAERS Safety Report 8412953-5 (Version None)
Quarter: 2012Q2

REPORT INFORMATION
  Report Type: 
  Country: None (occurrence: None)
  Receive Date: 20120605
  Receipt Date: 20120525
  Transmission Date: 20120825
  Serious: No
  Sender: FDA-Public Use
  Company Number: US-AMGEN-USASP2012033093

PATIENT
  Age: 47 Year
  Sex: Female

DRUGS (1)
  1. ENBREL [Suspect]
     Indication: PSORIASIS
     Dosage: 50 MG, QWK
     Dates: start: 20120419

REACTIONS (7)
  - NASOPHARYNGITIS [None]
  - CHILLS [None]
  - ABDOMINAL PAIN UPPER [None]
  - MALAISE [None]
  - MIGRAINE [None]
  - EYE PAIN [None]
  - UNEVALUABLE EVENT [None]
